FAERS Safety Report 10952621 (Version 1)
Quarter: 2015Q1

REPORT INFORMATION
  Report Type: Spontaneous
  Country: US (occurrence: None)
  Receive Date: 20150324
  Receipt Date: 20150324
  Transmission Date: 20150721
  Serious: Yes (Other)
  Sender: FDA-Public Use
  Company Number: None

PATIENT
  Age: 68 Year
  Sex: Female
  Weight: 60 kg

DRUGS (2)
  1. TARCEVA [Suspect]
     Active Substance: ERLOTINIB HYDROCHLORIDE
  2. AVASTIN [Suspect]
     Active Substance: BEVACIZUMAB

REACTIONS (1)
  - Hypophosphataemia [None]

NARRATIVE: CASE EVENT DATE: 20150302
